FAERS Safety Report 5732525-0 (Version None)
Quarter: 2008Q2

REPORT INFORMATION
  Report Type: 
  Country: None (occurrence: None)
  Receive Date: 20080508
  Receipt Date: 20080501
  Transmission Date: 20081010
  Serious: Yes (Other)
  Sender: FDA-Public Use
  Company Number: JP-MERCK-0805USA00152

PATIENT

DRUGS (3)
  1. HYZAAR [Suspect]
     Indication: HYPERTENSION
     Route: 048
     Dates: start: 20080227
  2. NORVASC [Concomitant]
     Indication: HYPERTENSION
     Route: 048
  3. GLUFAST [Concomitant]
     Route: 048

REACTIONS (1)
  - DRUG ERUPTION [None]
